FAERS Safety Report 17986105 (Version 2)
Quarter: 2020Q4

REPORT INFORMATION
  Report Type: Spontaneous
  Country: JP (occurrence: JP)
  Receive Date: 20200707
  Receipt Date: 20201229
  Transmission Date: 20210113
  Serious: Yes (Hospitalization)
  Sender: FDA-Public Use
  Company Number: JP-AMGEN-JPNSP2020041523

PATIENT
  Age: 66 Year
  Sex: Female

DRUGS (7)
  1. MIRCERA [Concomitant]
     Active Substance: METHOXY POLYETHYLENE GLYCOL-EPOETIN BETA
     Dosage: 50 UG, 1X/WEEK
     Route: 042
     Dates: start: 20200212, end: 20200219
  2. MIRCERA [Concomitant]
     Active Substance: METHOXY POLYETHYLENE GLYCOL-EPOETIN BETA
     Dosage: 25 UG, 1X/WEEK
     Route: 042
     Dates: start: 20200622, end: 20200803
  3. MIRCERA [Concomitant]
     Active Substance: METHOXY POLYETHYLENE GLYCOL-EPOETIN BETA
     Dosage: 12.5 UG, 1X/WEEK
     Route: 042
     Dates: start: 20200817, end: 20200906
  4. EPOETIN ALFA [Concomitant]
     Active Substance: ERYTHROPOIETIN
     Dosage: 3000 IU, QD
     Route: 042
     Dates: start: 20200120, end: 20200120
  5. NESP [Suspect]
     Active Substance: DARBEPOETIN ALFA
     Indication: NEPHROGENIC ANAEMIA
     Dosage: 60 MICROGRAM, QWK
     Route: 010
     Dates: start: 20200108, end: 20200207
  6. MIRCERA [Concomitant]
     Active Substance: METHOXY POLYETHYLENE GLYCOL-EPOETIN BETA
     Dosage: 50 UG, 1X/MONTH
     Route: 042
     Dates: start: 20200309, end: 20200413
  7. MIRCERA [Concomitant]
     Active Substance: METHOXY POLYETHYLENE GLYCOL-EPOETIN BETA
     Dosage: 50 UG, 1X/WEEK
     Route: 042
     Dates: start: 20200510, end: 20200525

REACTIONS (2)
  - Avulsion fracture [Recovered/Resolved]
  - Drug ineffective [Recovered/Resolved]

NARRATIVE: CASE EVENT DATE: 20200422
